FAERS Safety Report 12522405 (Version 1)
Quarter: 2016Q3

REPORT INFORMATION
  Report Type: Spontaneous
  Country: JP (occurrence: JP)
  Receive Date: 20160701
  Receipt Date: 20160701
  Transmission Date: 20161109
  Serious: Yes (Life-Threatening, Disabling, Other)
  Sender: FDA-Public Use
  Company Number: JP-MYLANLABS-2016M1020750

PATIENT

DRUGS (9)
  1. DECADRON [Concomitant]
     Active Substance: DEXAMETHASONE
     Indication: PROPHYLAXIS
     Dosage: 4 MG, CYCLE
     Route: 048
     Dates: start: 20160415, end: 20160515
  2. POLARAMINE [Concomitant]
     Active Substance: DEXCHLORPHENIRAMINE MALEATE
     Indication: PROPHYLAXIS
     Dosage: 5 MG, CYCLE
     Route: 041
     Dates: start: 20160414, end: 20160510
  3. CARBOPLATIN MYLAN [Suspect]
     Active Substance: CARBOPLATIN
     Indication: MALIGNANT PERITONEAL NEOPLASM
     Dosage: 260 MG, CYCLE
     Route: 041
     Dates: start: 20160414, end: 20160414
  4. CARBOPLATIN MYLAN [Suspect]
     Active Substance: CARBOPLATIN
     Dosage: 250 MG, CYCLE
     Route: 041
     Dates: start: 20160510, end: 20160510
  5. PACLITAXEL. [Concomitant]
     Active Substance: PACLITAXEL
     Indication: MALIGNANT PERITONEAL NEOPLASM
     Dosage: 440 MG, CYCLE
     Route: 041
     Dates: start: 20160414, end: 20160414
  6. EMEND [Concomitant]
     Active Substance: APREPITANT
     Indication: PROPHYLAXIS
     Dosage: UNK UNK, CYCLE
     Route: 048
     Dates: start: 20160414, end: 20160510
  7. PACLITAXEL. [Concomitant]
     Active Substance: PACLITAXEL
     Dosage: 400 MG, CYCLE
     Route: 041
     Dates: start: 20160510, end: 20160510
  8. ALOXI [Concomitant]
     Active Substance: PALONOSETRON HYDROCHLORIDE
     Indication: PROPHYLAXIS
     Dosage: 0.75 MG, CYCLE
     Route: 041
     Dates: start: 20160414, end: 20160510
  9. DEXART [Concomitant]
     Active Substance: DEXAMETHASONE SODIUM PHOSPHATE
     Indication: PROPHYLAXIS
     Dosage: 9.9 MG, CYCLE
     Route: 041
     Dates: start: 20160414, end: 20160510

REACTIONS (3)
  - Herpes zoster [Recovered/Resolved with Sequelae]
  - Inappropriate antidiuretic hormone secretion [Recovering/Resolving]
  - Febrile neutropenia [Recovered/Resolved]

NARRATIVE: CASE EVENT DATE: 20160425
